FAERS Safety Report 21081699 (Version 2)
Quarter: 2022Q3

REPORT INFORMATION
  Report Type: Spontaneous
  Country: US (occurrence: None)
  Receive Date: 20220714
  Receipt Date: 20220826
  Transmission Date: 20221027
  Serious: No
  Sender: FDA-Public Use
  Company Number: 2022A241589

PATIENT
  Sex: Male
  Weight: 68 kg

DRUGS (1)
  1. FASENRA [Suspect]
     Active Substance: BENRALIZUMAB
     Indication: Eosinophilic granulomatosis with polyangiitis
     Route: 058

REACTIONS (12)
  - Thyroid disorder [Unknown]
  - Body height decreased [Unknown]
  - Nasal polyps [Unknown]
  - Rhinitis [Unknown]
  - Nasal congestion [Unknown]
  - Gastrooesophageal reflux disease [Unknown]
  - Hypoacusis [Unknown]
  - Oesophagitis [Unknown]
  - Salivary hypersecretion [Unknown]
  - Myasthenia gravis [Unknown]
  - Symptom recurrence [Unknown]
  - Drug ineffective [Unknown]
